FAERS Safety Report 24183781 (Version 1)
Quarter: 2024Q3

REPORT INFORMATION
  Report Type: Spontaneous
  Country: US (occurrence: US)
  Receive Date: 20240807
  Receipt Date: 20240807
  Transmission Date: 20241017
  Serious: Yes (Hospitalization, Other)
  Sender: HIKMA
  Company Number: US-HIKMA PHARMACEUTICALS USA INC.-US-H14001-24-07314

PATIENT
  Age: 53 Year
  Sex: Female

DRUGS (17)
  1. BUPIVACAINE [Suspect]
     Active Substance: BUPIVACAINE
     Indication: Local anaesthesia
     Dosage: BOLUSED WITH 10 ML OF 0.25% BUPIVACAINE
     Route: 008
  2. FENTANYL [Suspect]
     Active Substance: FENTANYL\FENTANYL CITRATE
     Indication: General anaesthesia
     Dosage: 4 MILLILITER, QH
     Route: 008
  3. FENTANYL [Suspect]
     Active Substance: FENTANYL\FENTANYL CITRATE
     Dosage: 2 ?G/ML FENTANYL, AT 6 ML/H
     Route: 008
  4. FENTANYL [Suspect]
     Active Substance: FENTANYL\FENTANYL CITRATE
     Dosage: UNKNOWN
     Route: 065
  5. ROPIVACAINE [Suspect]
     Active Substance: ROPIVACAINE
     Indication: Local anaesthesia
     Dosage: BOLUSED WITH 10 ML OF 0.1% ROPIVACAINE IN 2 DIVIDED DOSES
     Route: 065
  6. ROPIVACAINE [Suspect]
     Active Substance: ROPIVACAINE
     Dosage: 4 MILLILITER, QH
     Route: 008
  7. ROPIVACAINE [Suspect]
     Active Substance: ROPIVACAINE
     Dosage: 6 MILLILITER, QH
     Route: 008
  8. BACLOFEN [Concomitant]
     Active Substance: BACLOFEN
     Indication: Product used for unknown indication
     Dosage: UNK
     Route: 065
  9. CHLORHEXIDINE GLUCONATE\ISOPROPYL ALCOHOL [Concomitant]
     Active Substance: CHLORHEXIDINE GLUCONATE\ISOPROPYL ALCOHOL
     Indication: Product used for unknown indication
     Dosage: SITE WAS CLEANED (2% CHLORHEXIDINE GLUCONATE AND 70% ISOPROPYL ALCOHOL)
     Route: 065
  10. EPINEPHRINE\LIDOCAINE [Concomitant]
     Active Substance: EPINEPHRINE\LIDOCAINE
     Indication: Product used for unknown indication
     Dosage: 1.5% LIDOCAINE AND 1:200,000 EPINEPHRINE
     Route: 065
  11. GLYCOPYRROLATE [Concomitant]
     Active Substance: GLYCOPYRROLATE
     Indication: Anaesthesia reversal
     Dosage: UNK
     Route: 065
  12. NEOSTIGMINE [Concomitant]
     Active Substance: NEOSTIGMINE
     Indication: Anaesthesia reversal
     Dosage: UNK
     Route: 065
  13. OXYCODONE AND ACETAMINOPHEN [Concomitant]
     Active Substance: ACETAMINOPHEN\OXYCODONE HYDROCHLORIDE
     Indication: Product used for unknown indication
     Dosage: UNK
     Route: 065
  14. PROPOFOL [Concomitant]
     Active Substance: PROPOFOL
     Indication: General anaesthesia
     Dosage: UNK
     Route: 065
  15. ROCURONIUM [Concomitant]
     Active Substance: ROCURONIUM BROMIDE
     Indication: General anaesthesia
     Dosage: UNK
     Route: 065
  16. SODIUM CHLORIDE [Concomitant]
     Active Substance: SODIUM CHLORIDE
     Indication: Product used for unknown indication
     Dosage: UNK
     Route: 065
  17. TRAZODONE [Concomitant]
     Active Substance: TRAZODONE HYDROCHLORIDE
     Indication: Product used for unknown indication
     Dosage: UNK
     Route: 065

REACTIONS (6)
  - Paraesthesia [Recovered/Resolved]
  - Horner^s syndrome [Recovered/Resolved]
  - Brachial plexopathy [Recovered/Resolved]
  - Hypotension [Recovered/Resolved]
  - Muscular weakness [Recovered/Resolved]
  - Device placement issue [Recovered/Resolved]
